FAERS Safety Report 10815325 (Version 1)
Quarter: 2015Q1

REPORT INFORMATION
  Report Type: Spontaneous
  Country: US (occurrence: US)
  Receive Date: 20150218
  Receipt Date: 20150218
  Transmission Date: 20150721
  Serious: Yes (Other)
  Sender: FDA-Public Use
  Company Number: US-TAKEDA-2015TUS001477

PATIENT
  Age: 51 Year
  Sex: Male

DRUGS (4)
  1. UNKNOWN BP PILL [Concomitant]
     Indication: BLOOD PRESSURE
     Dosage: UNK
     Route: 048
  2. UNKNOWN DIABETIC PILL [Concomitant]
     Indication: TYPE 2 DIABETES MELLITUS
     Dosage: UNK
     Route: 048
  3. CONTRAVE [Suspect]
     Active Substance: BUPROPION HYDROCHLORIDE\NALTREXONE HYDROCHLORIDE
     Indication: OVERWEIGHT
     Dosage: 8MG/ 90MG, UNK
     Route: 048
  4. UNKNOWN LIPID PILL [Concomitant]
     Indication: HYPERLIPIDAEMIA
     Dosage: UNK
     Route: 048

REACTIONS (3)
  - Confusional state [Recovered/Resolved]
  - Activities of daily living impaired [Recovered/Resolved]
  - Amnesia [Recovered/Resolved]
